FAERS Safety Report 16279753 (Version 1)
Quarter: 2019Q2

REPORT INFORMATION
  Report Type: Spontaneous
  Country: US (occurrence: US)
  Receive Date: 20190507
  Receipt Date: 20190507
  Transmission Date: 20190711
  Serious: No
  Sender: FDA-Public Use
  Company Number: US-AMGEN-USASP2019068759

PATIENT
  Sex: Male

DRUGS (1)
  1. ENBREL [Suspect]
     Active Substance: ETANERCEPT
     Indication: RHEUMATOID ARTHRITIS
     Dosage: 25 MILLIGRAM, 2 TIMES/WK (MONDAYS AND WEDNESDAYS)
     Route: 065
     Dates: start: 1999, end: 2016

REACTIONS (3)
  - Laboratory test abnormal [Unknown]
  - Pain [Unknown]
  - Therapeutic product effect decreased [Unknown]
